FAERS Safety Report 6724616-2 (Version None)
Quarter: 2010Q2

REPORT INFORMATION
  Report Type: 
  Country: None (occurrence: None)
  Receive Date: 20100513
  Receipt Date: 20100429
  Transmission Date: 20101027
  Serious: Yes (Hospitalization)
  Sender: FDA-Public Use
  Company Number: ES-ELI_LILLY_AND_COMPANY-ES201005000015

PATIENT
  Sex: Female
  Weight: 60 kg

DRUGS (7)
  1. FORTEO [Suspect]
     Indication: OSTEOPOROSIS
     Dosage: 20 UG, DAILY (1/D)
     Route: 058
     Dates: start: 20100303
  2. ALDACTONE [Concomitant]
     Indication: CARDIAC FAILURE
     Dosage: 25 MG, DAILY (1/D)
     Route: 048
  3. DIGOXIN [Concomitant]
     Indication: CARDIAC FAILURE
     Dosage: 0.5 D/F, EVERY 48H
     Route: 048
  4. SEGURIL [Concomitant]
     Indication: CARDIAC FAILURE
     Dosage: 1 D/F, EVERY 48H
     Route: 048
  5. OMEPRAZOLE [Concomitant]
     Dosage: 1 D/F, 2/D
     Route: 048
  6. LEXATIN [Concomitant]
     Indication: NERVOUS SYSTEM DISORDER
     Dosage: 1 D/F, DAILY (1/D)
     Route: 048
  7. SINTROM [Concomitant]
     Indication: CARDIAC FAILURE
     Dosage: UNK, AS NEEDED
     Route: 048

REACTIONS (3)
  - DIZZINESS [None]
  - PERICARDITIS [None]
  - PLEURAL EFFUSION [None]
